FAERS Safety Report 23843563 (Version 1)
Quarter: 2024Q2

REPORT INFORMATION
  Report Type: Spontaneous
  Country: US (occurrence: None)
  Receive Date: 20240510
  Receipt Date: 20240510
  Transmission Date: 20240715
  Serious: Yes (Hospitalization)
  Sender: FDA-Public Use
  Company Number: None

PATIENT
  Sex: Male

DRUGS (2)
  1. RELYVRIO [Suspect]
     Active Substance: SODIUM PHENYLBUTYRATE\TAURURSODIOL
     Indication: Amyotrophic lateral sclerosis
     Dosage: OTHER QUANTITY : 3/1GM;?FREQUENCY : TWICE A DAY;?
     Route: 048
     Dates: start: 202303
  2. RADICAVA ORS SUSP [Concomitant]

REACTIONS (1)
  - Pneumonia [None]
